FAERS Safety Report 9190302 (Version 1)
Quarter: 2013Q1

REPORT INFORMATION
  Report Type: Spontaneous
  Country: GB (occurrence: None)
  Receive Date: 20130322
  Receipt Date: 20130322
  Transmission Date: 20140127
  Serious: Yes (Hospitalization, Other)
  Sender: FDA-Public Use
  Company Number: 2013-05060

PATIENT
  Age: 69 Year
  Sex: Male

DRUGS (10)
  1. ASPIRIN [Suspect]
     Indication: PRODUCT USED FOR UNKNOWN INDICATION
     Route: 048
     Dates: end: 20130227
  2. SERTRALINE HYDROCHLORIDE [Suspect]
     Indication: PRODUCT USED FOR UNKNOWN INDICATION
     Route: 048
     Dates: start: 20130214, end: 20130227
  3. DALTEPARIN SOIDUM [Suspect]
     Indication: PRODUCT USED FOR UNKNOWN INDICATION
     Dosage: 5000 UNITS/0.2ML
     Route: 058
     Dates: end: 20130227
  4. THIAMINE [Concomitant]
  5. VITAMIN B COMPOUND/00003501/ (CALCIUM PANTOTHENATE, NICOTINAMIDE, PYRIDOXINE HYDROCHLORIDE, RIBOFLAVIN, THIAMINE HYDROCHLORIDE) [Concomitant]
  6. DIGOXIN (DIGOXIN) [Concomitant]
  7. PERINDOPRIL ERBUMME (PERINDOPRIL ERBUMME) [Concomitant]
  8. ATORVASTATIN (ATORVASTATIN) [Concomitant]
  9. PARACETAMOL (PARACETAMOL) [Concomitant]
  10. FLUCONAZOLE (FLUCONAZOLE) [Concomitant]

REACTIONS (2)
  - Upper gastrointestinal haemorrhage [None]
  - Haemoglobin decreased [None]
